FAERS Safety Report 9477538 (Version 2)
Quarter: 2013Q3

REPORT INFORMATION
  Report Type: Report from Study
  Country: US (occurrence: US)
  Receive Date: 20130827
  Receipt Date: 20130928
  Transmission Date: 20140515
  Serious: No
  Sender: FDA-Public Use
  Company Number: US-ROCHE-1266248

PATIENT
  Age: 58 Year
  Sex: Female

DRUGS (5)
  1. HERCEPTIN [Suspect]
     Indication: BREAST CANCER
     Dosage: MOST RECENT DOSE OF HERCEPTIN WAS RECEIVED ON 03/SEP/2013, CYCLE 8
     Route: 042
     Dates: start: 20130821, end: 20130821
  2. BENADRYL (UNITED STATES) [Concomitant]
     Route: 048
     Dates: start: 20130821, end: 20130821
  3. BENADRYL (UNITED STATES) [Concomitant]
     Route: 048
     Dates: start: 20130903
  4. TYLENOL [Concomitant]
     Route: 048
  5. TYLENOL [Concomitant]
     Route: 048
     Dates: start: 20130903

REACTIONS (2)
  - Blood glucose increased [Unknown]
  - Laboratory test abnormal [Unknown]
